FAERS Safety Report 20173150 (Version 1)
Quarter: 2021Q4

REPORT INFORMATION
  Report Type: Report from Study
  Country: ZA (occurrence: ZA)
  Receive Date: 20211211
  Receipt Date: 20211211
  Transmission Date: 20220303
  Serious: Yes (Other)
  Sender: FDA-Public Use
  Company Number: ZA-NOVARTISPH-PHHY2019ZA155870

PATIENT
  Age: 57 Year
  Sex: Female

DRUGS (8)
  1. FINGOLIMOD HYDROCHLORIDE [Suspect]
     Active Substance: FINGOLIMOD HYDROCHLORIDE
     Indication: Multiple sclerosis
     Dosage: 0.5 MG, QD
     Route: 048
     Dates: start: 20190701
  2. FINGOLIMOD HYDROCHLORIDE [Suspect]
     Active Substance: FINGOLIMOD HYDROCHLORIDE
     Dosage: 0.5 MG, QD
     Route: 048
     Dates: start: 20190703
  3. BISOPROLOL [Concomitant]
     Active Substance: BISOPROLOL
     Indication: Product used for unknown indication
     Dosage: 1 DF, QD
     Route: 065
  4. VALIUM [Concomitant]
     Active Substance: DIAZEPAM
     Indication: Product used for unknown indication
     Dosage: 10 MG, QD (AT NIGHT)
     Route: 065
  5. VALIUM [Concomitant]
     Active Substance: DIAZEPAM
     Dosage: 5 MG, QD (AT MORNING)
     Route: 065
  6. TEGRETOL [Concomitant]
     Active Substance: CARBAMAZEPINE
     Indication: Product used for unknown indication
     Dosage: 200 MG, UNK
     Route: 065
  7. ECOTRIN [Concomitant]
     Active Substance: ASPIRIN
     Indication: Product used for unknown indication
     Dosage: 1 DF, UNK
     Route: 065
  8. ETORICOXIB [Concomitant]
     Active Substance: ETORICOXIB
     Indication: Product used for unknown indication
     Dosage: UNK
     Route: 065

REACTIONS (12)
  - Disease progression [Not Recovered/Not Resolved]
  - Dysstasia [Not Recovered/Not Resolved]
  - Spinal deformity [Not Recovered/Not Resolved]
  - Multiple sclerosis relapse [Unknown]
  - Chills [Recovered/Resolved]
  - Influenza like illness [Unknown]
  - Mental disorder [Unknown]
  - Blood pressure fluctuation [Unknown]
  - Feeling abnormal [Unknown]
  - Hypotension [Unknown]
  - Anxiety [Unknown]
  - Product dose omission issue [Unknown]

NARRATIVE: CASE EVENT DATE: 20200101
